FAERS Safety Report 19712089 (Version 2)
Quarter: 2021Q3

REPORT INFORMATION
  Report Type: Report from Study
  Country: DE (occurrence: DE)
  Receive Date: 20210817
  Receipt Date: 20210921
  Transmission Date: 20211014
  Serious: Yes (Hospitalization)
  Sender: FDA-Public Use
  Company Number: NVSC2021DE185997

PATIENT
  Age: 75 Year
  Sex: Male
  Weight: 89.5 kg

DRUGS (3)
  1. NILOTINIB [Suspect]
     Active Substance: NILOTINIB
     Indication: CHRONIC MYELOID LEUKAEMIA
     Dosage: 300 MG, 2DD
     Route: 048
     Dates: start: 20191111, end: 20200817
  2. LISINOPRIL. [Concomitant]
     Active Substance: LISINOPRIL
     Indication: ESSENTIAL HYPERTENSION
     Dosage: 5 MG, 1DD
     Route: 048
     Dates: start: 20180812
  3. PRAVASTATINE [Concomitant]
     Active Substance: PRAVASTATIN
     Indication: PROPHYLAXIS
     Dosage: UNK
     Route: 065
     Dates: start: 20200210, end: 20200817

REACTIONS (1)
  - Coronary artery stenosis [Recovered/Resolved]

NARRATIVE: CASE EVENT DATE: 20200817
